FAERS Safety Report 6996962-9 (Version None)
Quarter: 2010Q3

REPORT INFORMATION
  Report Type: 
  Country: None (occurrence: None)
  Receive Date: 20100918
  Receipt Date: 20090921
  Transmission Date: 20110219
  Serious: No
  Sender: FDA-Public Use
  Company Number: US-WYE-H10638509

PATIENT
  Age: 65 Year
  Sex: Female

DRUGS (4)
  1. PRISTIQ [Suspect]
     Indication: DEPRESSION
     Route: 048
     Dates: start: 20090101
  2. METFORMIN [Concomitant]
  3. BUPROPION HYDROCHLORIDE [Concomitant]
  4. LOTENSIN [Concomitant]

REACTIONS (3)
  - ABNORMAL DREAMS [None]
  - ALOPECIA [None]
  - SLEEP DISORDER [None]
